FAERS Safety Report 8157968-X (Version None)
Quarter: 2012Q1

REPORT INFORMATION
  Report Type: 
  Country: None (occurrence: None)
  Receive Date: 20120222
  Receipt Date: 20120209
  Transmission Date: 20120608
  Serious: Yes (Other)
  Sender: FDA-Public Use
  Company Number: PHHY2011CA36303

PATIENT
  Sex: Female

DRUGS (2)
  1. SANDOSTATIN LAR [Suspect]
     Indication: CARCINOID TUMOUR
     Dosage: 40 MG, QMO
     Route: 030
     Dates: start: 20100106
  2. SANDOSTATIN LAR [Suspect]
     Dosage: 40 MG, EVERY 4 WEEKS
     Route: 030

REACTIONS (9)
  - CONSTIPATION [None]
  - HYPOPHAGIA [None]
  - GENERAL PHYSICAL HEALTH DETERIORATION [None]
  - ASTHENIA [None]
  - DYSPNOEA EXERTIONAL [None]
  - MUSCULAR WEAKNESS [None]
  - ABASIA [None]
  - WEIGHT DECREASED [None]
  - PRODUCTIVE COUGH [None]
